FAERS Safety Report 6148722-9 (Version None)
Quarter: 2009Q2

REPORT INFORMATION
  Report Type: 
  Country: None (occurrence: None)
  Receive Date: 20090408
  Receipt Date: 20090326
  Transmission Date: 20091009
  Serious: Yes (Death, Hospitalization)
  Sender: FDA-Public Use
  Company Number: JP-ABBOTT-09P-087-0566712-00

PATIENT
  Age: 78 Year
  Sex: Male

DRUGS (10)
  1. LEUPLIN SR FOR INJECTION 11.25 MG [Suspect]
     Indication: PROSTATE CANCER STAGE IV
     Route: 058
     Dates: start: 20060801, end: 20070710
  2. CASODEX [Concomitant]
     Indication: PROSTATE CANCER STAGE IV
     Route: 048
     Dates: start: 20060615, end: 20070910
  3. GASTER D [Concomitant]
     Indication: GASTRITIS
     Route: 048
     Dates: end: 20070910
  4. LENDORMIN [Concomitant]
     Indication: INSOMNIA
     Route: 048
     Dates: end: 20070910
  5. TAMSULOSIN HYDROCHLORIDE [Concomitant]
     Indication: BENIGN PROSTATIC HYPERPLASIA
     Route: 048
     Dates: start: 20060801, end: 20061128
  6. BUP-4 [Concomitant]
     Indication: POLLAKIURIA
     Route: 048
     Dates: start: 20061128, end: 20070910
  7. BUP-4 [Concomitant]
     Indication: NERVOUSNESS
  8. LOXONIN [Concomitant]
     Indication: PAIN
     Route: 048
     Dates: start: 20070903, end: 20070910
  9. MUCOSTA [Concomitant]
     Indication: PAIN
     Route: 048
     Dates: start: 20070903, end: 20070910
  10. VOLTAREN [Concomitant]
     Indication: PAIN
     Route: 054
     Dates: start: 20070903, end: 20070910

REACTIONS (1)
  - LUNG NEOPLASM MALIGNANT [None]
